FAERS Safety Report 8249310-0 (Version None)
Quarter: 2012Q1

REPORT INFORMATION
  Report Type: 
  Country: None (occurrence: None)
  Receive Date: 20120327
  Receipt Date: 20120314
  Transmission Date: 20120608
  Serious: Yes (Death, Life-Threatening, Hospitalization, Other)
  Sender: FDA-Public Use
  Company Number: 2008AL009932

PATIENT
  Age: 79 Year
  Sex: Male
  Weight: 79.3795 kg

DRUGS (18)
  1. CRESTOR [Concomitant]
  2. NYSTATIN [Concomitant]
  3. AMIODARONE HCL [Concomitant]
  4. WARFARIN SODIUM [Concomitant]
  5. ULTRAM [Concomitant]
  6. DIGOXIN [Suspect]
     Dosage: 125 MCG;QD;PO
     Route: 048
     Dates: start: 20070918, end: 20070921
  7. AMIODARONE HCL [Concomitant]
  8. MULTI-VITAMIN [Concomitant]
  9. GLYBURIDE [Concomitant]
  10. POTASSIUM CHLORIDE [Concomitant]
  11. COUMADIN [Concomitant]
  12. LOPRESSOR [Concomitant]
  13. NEXIUM [Concomitant]
  14. ASPIRIN [Concomitant]
  15. FLOMAX [Concomitant]
  16. LASIX [Concomitant]
  17. FUROSEMIDE [Concomitant]
  18. NITROGLYCERIN [Concomitant]

REACTIONS (20)
  - CARDIAC ARREST [None]
  - CARDIAC FAILURE CONGESTIVE [None]
  - ATRIAL FIBRILLATION [None]
  - HAEMATURIA [None]
  - UNRESPONSIVE TO STIMULI [None]
  - CORONARY ARTERY OCCLUSION [None]
  - BRADYCARDIA [None]
  - INFECTED DERMAL CYST [None]
  - VASCULAR GRAFT OCCLUSION [None]
  - RENAL FAILURE [None]
  - PULMONARY OEDEMA [None]
  - URINARY RETENTION [None]
  - CORONARY ARTERY STENOSIS [None]
  - AORTIC VALVE DISEASE [None]
  - HYPOXIC-ISCHAEMIC ENCEPHALOPATHY [None]
  - MULTIPLE INJURIES [None]
  - LEFT VENTRICULAR DYSFUNCTION [None]
  - ARRHYTHMIA [None]
  - ECONOMIC PROBLEM [None]
  - RESPIRATORY DISORDER [None]
